FAERS Safety Report 13303935 (Version 1)
Quarter: 2017Q1

REPORT INFORMATION
  Report Type: Not Available
  Country: RS (occurrence: None)
  Receive Date: 20170307
  Receipt Date: 20170307
  Transmission Date: 20170428
  Serious: Yes (Death)
  Sender: FDA-Public Use
  Company Number: --2017-RS-000001

PATIENT
  Age: 24 Year
  Sex: Female

DRUGS (3)
  1. AMLODIPINE BESYLATE BRAND UNSPECIFIED (VIVIMED) [Suspect]
     Active Substance: AMLODIPINE BESYLATE
     Indication: POISONING DELIBERATE
  2. METFORMIN [Suspect]
     Active Substance: METFORMIN HYDROCHLORIDE
     Indication: POISONING DELIBERATE
  3. GLICLAZIDE [Suspect]
     Active Substance: GLICLAZIDE
     Indication: POISONING DELIBERATE

REACTIONS (7)
  - Cardiac arrest [Fatal]
  - Overdose [Unknown]
  - Tachycardia [Unknown]
  - Hyperglycaemia [Unknown]
  - Hypotension [Unknown]
  - Metabolic acidosis [Unknown]
  - Intentional overdose [None]
